FAERS Safety Report 9751570 (Version 6)
Quarter: 2014Q3

REPORT INFORMATION
  Report Type: Report from Study
  Country: DE (occurrence: DE)
  Receive Date: 20131212
  Receipt Date: 20140818
  Transmission Date: 20150326
  Serious: Yes (Hospitalization, Disabling)
  Sender: FDA-Public Use
  Company Number: PHHO2013DE015885

PATIENT

DRUGS (8)
  1. ALDACTONE [Concomitant]
     Active Substance: SPIRONOLACTONE
     Dosage: 25
  2. PANTOPRAZOLE [Concomitant]
     Active Substance: PANTOPRAZOLE SODIUM
     Dosage: 40
  3. METOPROLOL [Concomitant]
     Active Substance: METOPROLOL
     Dosage: 100
  4. SIMVASTATIN. [Concomitant]
     Active Substance: SIMVASTATIN
     Dosage: 40
  5. HCT [Concomitant]
     Active Substance: HYDROCHLOROTHIAZIDE
     Dosage: 25
  6. ENALAPRIL [Suspect]
     Active Substance: ENALAPRIL
     Indication: CARDIAC FAILURE CHRONIC
     Dosage: 10 MG, BID
     Route: 048
     Dates: start: 20100804
  7. FURORESE [Suspect]
     Active Substance: FUROSEMIDE
     Dosage: 40
  8. MARCUMAR [Concomitant]
     Active Substance: PHENPROCOUMON

REACTIONS (2)
  - Ventricular fibrillation [Recovered/Resolved with Sequelae]
  - Cardiac failure [Recovering/Resolving]

NARRATIVE: CASE EVENT DATE: 20131204
